FAERS Safety Report 4524119-X (Version None)
Quarter: 2004Q4

REPORT INFORMATION
  Report Type: 
  Country: None (occurrence: None)
  Receive Date: 20041209
  Receipt Date: 20041126
  Transmission Date: 20050328
  Serious: Yes (Other)
  Sender: FDA-Public Use
  Company Number: 2004077317

PATIENT
  Age: 75 Year
  Sex: Female

DRUGS (1)
  1. ZITHROMAX [Suspect]
     Indication: PNEUMONIA
     Dosage: 500 MG (500 MG, DAILY), INTRAVENOUS
     Route: 042
     Dates: start: 20041006, end: 20041006

REACTIONS (3)
  - CUTANEOUS VASCULITIS [None]
  - INJECTION SITE REACTION [None]
  - PURPURA [None]
